FAERS Safety Report 4709149-7 (Version None)
Quarter: 2005Q3

REPORT INFORMATION
  Report Type: 
  Country: None (occurrence: None)
  Receive Date: 20050708
  Receipt Date: 20050627
  Transmission Date: 20060218
  Serious: Yes (Other)
  Sender: FDA-Public Use
  Company Number: US-JNJFOC-20050607307

PATIENT
  Age: 16 Year
  Sex: Female
  Weight: 58.06 kg

DRUGS (4)
  1. ORTHO EVRA [Suspect]
     Indication: CONTRACEPTION
     Route: 062
     Dates: start: 20050612
  2. TRILIPTAL [Concomitant]
     Dosage: Q PM
     Route: 065
  3. TRILIPTAL [Concomitant]
     Dosage: Q AM
     Route: 065
  4. ZONEGRAN [Concomitant]
     Dosage: Q PM
     Route: 065

REACTIONS (1)
  - CONVULSION [None]
